FAERS Safety Report 8474705 (Version 2)
Quarter: 2013Q3

REPORT INFORMATION
  Report Type: Spontaneous
  Country: US (occurrence: US)
  Receive Date: 20120323
  Receipt Date: 20130712
  Transmission Date: 20140515
  Serious: Yes (Other)
  Sender: FDA-Public Use
  Company Number: US-ROCHE-1024484

PATIENT
  Age: 23 Year
  Sex: Female
  Weight: 48.12 kg

DRUGS (1)
  1. ACCUTANE [Suspect]
     Indication: ACNE
     Route: 065
     Dates: start: 200211, end: 200304

REACTIONS (7)
  - Colitis ulcerative [Unknown]
  - Emotional distress [Unknown]
  - Anxiety [Unknown]
  - Inflammatory bowel disease [Unknown]
  - Platelet count increased [Unknown]
  - Aspartate aminotransferase increased [Unknown]
  - Alanine aminotransferase increased [Unknown]
